FAERS Safety Report 9680172 (Version 4)
Quarter: 2013Q4

REPORT INFORMATION
  Report Type: Spontaneous
  Country: US (occurrence: US)
  Receive Date: 20131111
  Receipt Date: 20131223
  Transmission Date: 20140711
  Serious: Yes (Death, Hospitalization)
  Sender: FDA-Public Use
  Company Number: US-BIOGENIDEC-2013BI106284

PATIENT
  Sex: Male

DRUGS (2)
  1. TYSABRI [Suspect]
     Indication: MULTIPLE SCLEROSIS
     Route: 042
     Dates: start: 20121124, end: 20131019
  2. PAMELOR [Concomitant]
     Indication: DEPRESSION

REACTIONS (5)
  - Cerebral haemorrhage [Fatal]
  - Multiple sclerosis [Unknown]
  - Coordination abnormal [Unknown]
  - Aphasia [Unknown]
  - General symptom [Unknown]
